FAERS Safety Report 7394767-0 (Version None)
Quarter: 2011Q2

REPORT INFORMATION
  Report Type: 
  Country: None (occurrence: None)
  Receive Date: 20110405
  Receipt Date: 20110328
  Transmission Date: 20111010
  Serious: Yes (Life-Threatening, Hospitalization)
  Sender: FDA-Public Use
  Company Number: B0710518A

PATIENT
  Sex: Female

DRUGS (2)
  1. SALAZOPYRINE [Concomitant]
     Indication: RHEUMATOID ARTHRITIS
     Dates: end: 20090903
  2. ALLI [Suspect]
     Route: 065
     Dates: start: 20090601

REACTIONS (12)
  - PYREXIA [None]
  - ASPARTATE AMINOTRANSFERASE INCREASED [None]
  - CYTOLYTIC HEPATITIS [None]
  - HEPATIC ENCEPHALOPATHY [None]
  - HEPATITIS [None]
  - HEPATITIS FULMINANT [None]
  - CEREBRAL HAEMORRHAGE [None]
  - VOMITING [None]
  - ALANINE AMINOTRANSFERASE INCREASED [None]
  - CHOLESTASIS [None]
  - CONVULSION [None]
  - ABDOMINAL PAIN [None]
